FAERS Safety Report 5569482-6 (Version None)
Quarter: 2007Q4

REPORT INFORMATION
  Report Type: 
  Country: None (occurrence: None)
  Receive Date: 20071220
  Receipt Date: 20071126
  Transmission Date: 20080405
  Serious: No
  Sender: FDA-Public Use
  Company Number: US-BAYER-200713911BCC

PATIENT
  Age: 89 Year
  Sex: Female
  Weight: 54 kg

DRUGS (3)
  1. ALEVE- D COLD + SINUS [Suspect]
     Indication: SINUS CONGESTION
     Route: 048
     Dates: start: 20071125, end: 20071125
  2. ALEVE [Suspect]
     Indication: ARTHRALGIA
     Dosage: AS USED: 220 MG  UNIT DOSE: 220 MG
     Route: 048
     Dates: start: 20071125
  3. SYNTHROID [Concomitant]

REACTIONS (1)
  - INSOMNIA [None]
